FAERS Safety Report 4301422-X (Version None)
Quarter: 2004Q1

REPORT INFORMATION
  Report Type: 
  Country: None (occurrence: None)
  Receive Date: 20040219
  Receipt Date: 20040204
  Transmission Date: 20041129
  Serious: Yes (Other)
  Sender: FDA-Public Use
  Company Number: GB-JNJFOC-20040201255

PATIENT
  Age: 14 Year
  Sex: Male
  Weight: 51.5 kg

DRUGS (2)
  1. CONCERTA [Suspect]
     Indication: ATTENTION DEFICIT/HYPERACTIVITY DISORDER
     Dosage: 54 MG, IN 1 DAY, ORAL
     Route: 048
     Dates: start: 20020517, end: 20040116
  2. CONCERTA [Suspect]
     Indication: PSYCHOMOTOR HYPERACTIVITY
     Dosage: 54 MG, IN 1 DAY, ORAL
     Route: 048
     Dates: start: 20020517, end: 20040116

REACTIONS (1)
  - HEPATITIS [None]
